FAERS Safety Report 18380515 (Version 1)
Quarter: 2020Q4

REPORT INFORMATION
  Report Type: Report from Study
  Country: GB (occurrence: GB)
  Receive Date: 20201014
  Receipt Date: 20201014
  Transmission Date: 20210114
  Serious: Yes (Other)
  Sender: FDA-Public Use
  Company Number: GB-ACCORD-204923

PATIENT
  Age: 70 Year
  Sex: Male
  Weight: 105 kg

DRUGS (19)
  1. BENDAMUSTINE [Suspect]
     Active Substance: BENDAMUSTINE
     Indication: CHRONIC LYMPHOCYTIC LEUKAEMIA
     Dosage: 330 MG, CYCLIC PER PROTOCOL (MONTHLY)
     Route: 042
     Dates: start: 20150714, end: 20151222
  2. APIXABAN [Concomitant]
     Active Substance: APIXABAN
     Indication: ANTICOAGULANT THERAPY
     Dosage: 5 MG, QD
     Route: 048
     Dates: start: 20150715
  3. ALLOPURINOL. [Concomitant]
     Active Substance: ALLOPURINOL
     Indication: GOUT
     Dosage: 100 MG, QD
     Route: 048
  4. HYPROMELLOSE/HYPROMELLOSE PHTHALATE [Concomitant]
     Indication: DRY EYE
     Dosage: 1 GTT (1/12 MILLILITRE)
     Route: 047
     Dates: start: 20151222
  5. FLUOROURACIL. [Concomitant]
     Active Substance: FLUOROURACIL
     Indication: SCAR
     Dosage: 1 OT, QD
     Route: 061
     Dates: start: 20180919
  6. SILDENAFIL. [Concomitant]
     Active Substance: SILDENAFIL
     Indication: ERECTILE DYSFUNCTION
     Dosage: 50 MG
     Route: 048
  7. HYPROMELLOSE/HYPROMELLOSE PHTHALATE [Concomitant]
     Indication: DRY EYE
     Dosage: 1 GTT
     Route: 047
  8. OTOMIZE [DEXAMETHASONE\NEOMYCIN SULFATE] [Concomitant]
     Active Substance: DEXAMETHASONE\NEOMYCIN SULFATE
     Indication: EAR INFECTION
     Dosage: UNK, PRN
     Route: 061
  9. CETRABEN [Concomitant]
     Indication: PSORIASIS
     Dosage: PRN
     Route: 061
     Dates: start: 20080615
  10. HYDROCHLOROTHIAZIDE/IRBESARTAN [Concomitant]
     Active Substance: HYDROCHLOROTHIAZIDE\IRBESARTAN
     Indication: HYPERTENSION
     Route: 048
  11. THIAMINE. [Concomitant]
     Active Substance: THIAMINE
     Indication: SUPPLEMENTATION THERAPY
     Dosage: 50 MG, QD
     Route: 048
     Dates: start: 20150611
  12. OTOMIZE [DEXAMETHASONE\NEOMYCIN SULFATE] [Concomitant]
     Active Substance: DEXAMETHASONE\NEOMYCIN SULFATE
     Indication: EAR INFECTION
     Dosage: UNK, PRN
     Route: 061
  13. LEVOTHYROXINE. [Concomitant]
     Active Substance: LEVOTHYROXINE
     Indication: HYPOTHYROIDISM
     Dosage: 75 MG, QD
     Route: 048
     Dates: start: 20140215
  14. G-CSF [Concomitant]
     Active Substance: GRANULOCYTE COLONY-STIMULATING FACTOR NOS
     Indication: PRODUCT USED FOR UNKNOWN INDICATION
     Route: 065
  15. MOMETASONE [Concomitant]
     Active Substance: MOMETASONE
     Indication: SEASONAL ALLERGY
     Dosage: 50 MCG
     Route: 061
  16. AMLODIPINE [Concomitant]
     Active Substance: AMLODIPINE BESYLATE
     Indication: HYPERTENSION
     Dosage: 5 MG, QD (ANTICOAGULANT AND PRESERVATIVE SOLUTION FOR BLOOD)
     Route: 048
     Dates: start: 20090615
  17. CAPASAL [Concomitant]
     Indication: PSORIASIS
     Dosage: 1 OT, QD
     Route: 061
     Dates: start: 20080615
  18. CETRABEN [Concomitant]
     Indication: PSORIASIS
  19. OFATUMUMAB [Suspect]
     Active Substance: OFATUMUMAB
     Indication: CHRONIC LYMPHOCYTIC LEUKAEMIA
     Dosage: 1000 MG, QMO
     Route: 042
     Dates: start: 20150714, end: 20151222

REACTIONS (3)
  - Bowen^s disease [Recovered/Resolved]
  - External ear neoplasm malignant [Recovered/Resolved]
  - Squamous cell carcinoma of skin [Recovered/Resolved]

NARRATIVE: CASE EVENT DATE: 20160923
